FAERS Safety Report 5839947-8 (Version None)
Quarter: 2008Q3

REPORT INFORMATION
  Report Type: 
  Country: None (occurrence: None)
  Receive Date: 20080807
  Receipt Date: 20080807
  Transmission Date: 20090109
  Serious: Yes (Death)
  Sender: FDA-Public Use
  Company Number: None

PATIENT
  Sex: Female
  Weight: 79 kg

DRUGS (1)
  1. RETEPLASE [Suspect]
     Indication: MYOCARDIAL INFARCTION
     Dosage: 10MG ONCE IV
     Route: 042
     Dates: start: 20080718

REACTIONS (3)
  - COAGULOPATHY [None]
  - HAEMORRHAGE INTRACRANIAL [None]
  - HEMIPLEGIA [None]
